FAERS Safety Report 6545952-9 (Version None)
Quarter: 2010Q1

REPORT INFORMATION
  Report Type: 
  Country: None (occurrence: None)
  Receive Date: 20100121
  Receipt Date: 20100113
  Transmission Date: 20100710
  Serious: Yes (Death)
  Sender: FDA-Public Use
  Company Number: US-MERCK-1001USA01525

PATIENT
  Age: 81 Year
  Sex: Female

DRUGS (4)
  1. TIAMATE [Suspect]
     Route: 048
  2. ACETAMINOPHEN AND HYDROCODONE BITARTRATE [Suspect]
     Route: 065
  3. AMIODARONE [Suspect]
     Route: 065
  4. MORPHINE [Suspect]
     Route: 065

REACTIONS (2)
  - COMPLETED SUICIDE [None]
  - OVERDOSE [None]
